FAERS Safety Report 6033238-0 (Version None)
Quarter: 2009Q1

REPORT INFORMATION
  Report Type: 
  Country: None (occurrence: None)
  Receive Date: 20090109
  Receipt Date: 20081230
  Transmission Date: 20090719
  Serious: Yes (Other)
  Sender: FDA-Public Use
  Company Number: US-BAXTER-2009BH000065

PATIENT
  Age: 4 Year
  Sex: Male
  Weight: 16 kg

DRUGS (7)
  1. SEVOFLURANE [Suspect]
     Indication: ANAESTHESIA
     Route: 055
  2. SEVOFLURANE [Suspect]
     Route: 055
  3. NITROUS OXIDE [Concomitant]
     Indication: ANAESTHESIA
     Route: 055
  4. OXYGEN [Concomitant]
     Indication: ANAESTHESIA
     Route: 055
  5. FENTANYL-100 [Concomitant]
     Indication: ANAESTHESIA
     Route: 055
  6. CISATRACURIUM [Concomitant]
     Indication: ANAESTHESIA
     Route: 055
  7. NITROUS OXIDE [Concomitant]
     Route: 055

REACTIONS (1)
  - ATRIOVENTRICULAR BLOCK COMPLETE [None]
